FAERS Safety Report 16309570 (Version 1)
Quarter: 2019Q2

REPORT INFORMATION
  Report Type: Spontaneous
  Country: DE (occurrence: DE)
  Receive Date: 20190514
  Receipt Date: 20190514
  Transmission Date: 20190711
  Serious: Yes (Life-Threatening, Hospitalization, Disabling, Other)
  Sender: FDA-Public Use
  Company Number: DE-JNJFOC-20190204022

PATIENT
  Age: 79 Year
  Sex: Male
  Weight: 94 kg

DRUGS (16)
  1. ESOMEPRAZOLE. [Concomitant]
     Active Substance: ESOMEPRAZOLE MAGNESIUM
     Dosage: HS
     Route: 065
  2. XARELTO [Suspect]
     Active Substance: RIVAROXABAN
     Indication: ATRIAL FIBRILLATION
     Route: 048
     Dates: start: 20170818, end: 20190104
  3. CANDESARTAN. [Concomitant]
     Active Substance: CANDESARTAN
     Dosage: PAUSED
     Route: 065
  4. DIHYDRALAZINE SULFATE [Concomitant]
     Active Substance: DIHYDRALAZINE SULFATE
     Route: 065
  5. CIRCADIN [Concomitant]
     Active Substance: MELATONIN
     Dosage: HS
     Route: 065
  6. FINASTERID [Concomitant]
     Active Substance: FINASTERIDE
     Dosage: HS
     Route: 065
  7. HCT [Concomitant]
     Active Substance: HYDROCHLOROTHIAZIDE
     Route: 065
  8. CLEXANE [Concomitant]
     Active Substance: ENOXAPARIN SODIUM
     Route: 058
  9. FERRO SANOL [Concomitant]
     Active Substance: FERROUS GLYCINE SULFATE
     Dosage: 35 GGT OM
     Route: 065
  10. ZOPICLON HEXAL [Concomitant]
     Active Substance: ZOPICLONE
     Dosage: HS
     Route: 065
  11. THIAMIN [Concomitant]
     Active Substance: THIAMINE
     Dosage: HS
     Route: 065
  12. XARELTO [Suspect]
     Active Substance: RIVAROXABAN
     Indication: ATRIAL FIBRILLATION
     Route: 048
     Dates: start: 20170818, end: 20190104
  13. METOPROLOL. [Concomitant]
     Active Substance: METOPROLOL
     Route: 065
  14. METAMIZOLE SODIUM [Concomitant]
     Active Substance: METAMIZOLE SODIUM
     Route: 065
  15. ALLOPURINOL. [Concomitant]
     Active Substance: ALLOPURINOL
     Route: 048
  16. HALOPERIDOL. [Concomitant]
     Active Substance: HALOPERIDOL
     Dosage: PRN
     Route: 065

REACTIONS (8)
  - Epilepsy [Unknown]
  - Pyrexia [Unknown]
  - Cerebral haemorrhage [Not Recovered/Not Resolved]
  - Disturbance in attention [Unknown]
  - Delirium [Unknown]
  - Organic brain syndrome [Unknown]
  - Hemiparesis [Unknown]
  - Dysphagia [Unknown]

NARRATIVE: CASE EVENT DATE: 20190104
